FAERS Safety Report 15468343 (Version 4)
Quarter: 2018Q4

REPORT INFORMATION
  Report Type: Spontaneous
  Country: JP (occurrence: JP)
  Receive Date: 20181005
  Receipt Date: 20181221
  Transmission Date: 20190204
  Serious: Yes (Death)
  Sender: FDA-Public Use
  Company Number: JP-ASTRAZENECA-2018SF25245

PATIENT
  Age: 77 Year
  Sex: Male
  Weight: 39 kg

DRUGS (1)
  1. TAGRISSO [Suspect]
     Active Substance: OSIMERTINIB
     Indication: NON-SMALL CELL LUNG CANCER
     Route: 048
     Dates: start: 20180724, end: 20180908

REACTIONS (3)
  - Myocardial infarction [Fatal]
  - Malignant neoplasm progression [Fatal]
  - Lung disorder [Fatal]

NARRATIVE: CASE EVENT DATE: 20180908
